FAERS Safety Report 5346016-2 (Version None)
Quarter: 2007Q2

REPORT INFORMATION
  Report Type: 
  Country: None (occurrence: None)
  Receive Date: 20070605
  Receipt Date: 20070528
  Transmission Date: 20071010
  Serious: Yes (Death, Hospitalization)
  Sender: FDA-Public Use
  Company Number: ES-ELI_LILLY_AND_COMPANY-ES200705007680

PATIENT
  Age: 64 Year
  Sex: Male

DRUGS (2)
  1. GEMZAR [Suspect]
     Indication: BLADDER CANCER STAGE IV
     Dosage: UNK, OTHER
  2. OXALIPLATIN [Concomitant]
     Indication: BLADDER CANCER STAGE IV
     Dosage: UNK, OTHER

REACTIONS (2)
  - ENCEPHALOPATHY [None]
  - PNEUMONIA ASPIRATION [None]
